FAERS Safety Report 20202405 (Version 2)
Quarter: 2021Q4

REPORT INFORMATION
  Report Type: Spontaneous
  Country: AU (occurrence: None)
  Receive Date: 20211217
  Receipt Date: 20211223
  Transmission Date: 20220303
  Serious: Yes (Hospitalization)
  Sender: FDA-Public Use
  Company Number: 2021A869966

PATIENT
  Sex: Male

DRUGS (2)
  1. FASENRA [Suspect]
     Active Substance: BENRALIZUMAB
     Indication: Asthma
     Route: 058
     Dates: start: 20211014
  2. PREDNISONE [Concomitant]
     Active Substance: PREDNISONE

REACTIONS (2)
  - Urinary bladder haemorrhage [Recovered/Resolved]
  - Asthma [Unknown]

NARRATIVE: CASE EVENT DATE: 20211119
